FAERS Safety Report 24007126 (Version 3)
Quarter: 2024Q3

REPORT INFORMATION
  Report Type: Spontaneous
  Country: TW (occurrence: TW)
  Receive Date: 20240624
  Receipt Date: 20240704
  Transmission Date: 20241017
  Serious: Yes (Other)
  Sender: NOVARTIS
  Company Number: TW-002147023-NVSC2024TW129434

PATIENT
  Sex: Male

DRUGS (2)
  1. KYMRIAH [Suspect]
     Active Substance: TISAGENLECLEUCEL
     Indication: B-cell type acute leukaemia
     Dosage: 1 UNK, ONCE/SINGLE (BAG)
     Route: 042
  2. KYMRIAH [Suspect]
     Active Substance: TISAGENLECLEUCEL
     Indication: Testis cancer

REACTIONS (2)
  - B-cell type acute leukaemia [Unknown]
  - Testis cancer recurrent [Unknown]
